FAERS Safety Report 15965606 (Version 1)
Quarter: 2019Q1

REPORT INFORMATION
  Report Type: Spontaneous
  Country: US (occurrence: US)
  Receive Date: 20190215
  Receipt Date: 20190215
  Transmission Date: 20190418
  Serious: No
  Sender: FDA-Public Use
  Company Number: US-RIGEL PHARMACEUTICALS, INC.-2019FOS000027

PATIENT

DRUGS (1)
  1. TAVALISSE [Suspect]
     Active Substance: FOSTAMATINIB
     Indication: AUTOIMMUNE HAEMOLYTIC ANAEMIA
     Dosage: 150 MG, BID

REACTIONS (3)
  - Fatigue [Unknown]
  - Dizziness [Unknown]
  - Off label use [Unknown]
